FAERS Safety Report 5931377-3 (Version None)
Quarter: 2008Q4

REPORT INFORMATION
  Report Type: 
  Country: None (occurrence: None)
  Receive Date: 20081027
  Receipt Date: 20081017
  Transmission Date: 20090506
  Serious: Yes (Other)
  Sender: FDA-Public Use
  Company Number: PHHO2008BE12097

PATIENT
  Sex: Female
  Weight: 66.2 kg

DRUGS (4)
  1. CGS 20267 T30748+ [Suspect]
     Indication: BREAST CANCER
     Dosage: 2.5 MG, QD
     Route: 048
     Dates: start: 20040611
  2. ZOLEDRONIC ACID [Suspect]
     Dosage: UNK
     Route: 042
     Dates: start: 20040611
  3. CARDIO ASPIRINA [Concomitant]
     Indication: HYPERTENSION
  4. BURINEX [Concomitant]
     Indication: HYPERTENSION

REACTIONS (2)
  - IRIDOCYCLITIS [None]
  - OCULAR HYPERAEMIA [None]
